FAERS Safety Report 21920022 (Version 4)
Quarter: 2023Q2

REPORT INFORMATION
  Report Type: Spontaneous
  Country: DO (occurrence: DO)
  Receive Date: 20230127
  Receipt Date: 20230405
  Transmission Date: 20230722
  Serious: No
  Sender: FDA-Public Use
  Company Number: DO-PFIZER INC-PV202300014489

PATIENT
  Age: 12 Year
  Sex: Female

DRUGS (1)
  1. GENOTROPIN [Suspect]
     Active Substance: SOMATROPIN
     Dosage: 2 MG, 1X/DAY (AT NIGHT)

REACTIONS (5)
  - Dose calculation error [Unknown]
  - Incorrect dose administered by device [Unknown]
  - Device issue [Unknown]
  - Wrong technique in device usage process [Unknown]
  - Wrong device used [Unknown]

NARRATIVE: CASE EVENT DATE: 20230101
